FAERS Safety Report 6522590-5 (Version None)
Quarter: 2009Q4

REPORT INFORMATION
  Report Type: 
  Country: None (occurrence: None)
  Receive Date: 20091214
  Receipt Date: 20090902
  Transmission Date: 20100525
  Serious: Yes (Hospitalization, Disabling)
  Sender: FDA-Public Use
  Company Number: 654143

PATIENT
  Age: 52 Year
  Sex: Male
  Weight: 53.1 kg

DRUGS (3)
  1. PEGASYS [Suspect]
     Indication: HEPATITIS C
     Dosage: 180 UG 1 PER WEEK SUBCUTANEOUS
     Route: 058
     Dates: start: 20080121, end: 20080616
  2. RIBAVIRIN [Concomitant]
  3. PROCRIT [Concomitant]

REACTIONS (8)
  - ANAEMIA [None]
  - ASTHENIA [None]
  - DEPRESSION [None]
  - ENCEPHALITIS [None]
  - HAEMOLYSIS [None]
  - IRRITABILITY [None]
  - NEUROLOGICAL SYMPTOM [None]
  - WEST NILE VIRAL INFECTION [None]
